FAERS Safety Report 18948779 (Version 5)
Quarter: 2021Q4

REPORT INFORMATION
  Report Type: Report from Study
  Country: US (occurrence: US)
  Receive Date: 20210227
  Receipt Date: 20211214
  Transmission Date: 20220304
  Serious: Yes (Hospitalization, Other)
  Sender: FDA-Public Use
  Company Number: US-TAKEDA-2021TUS011263

PATIENT
  Age: 2 Year
  Sex: Male
  Weight: 13 kg

DRUGS (8)
  1. TEDUGLUTIDE [Suspect]
     Active Substance: TEDUGLUTIDE
     Indication: Short-bowel syndrome
     Dosage: 0.575 MILLIGRAM, QD
     Route: 058
     Dates: start: 20200928
  2. TEDUGLUTIDE [Suspect]
     Active Substance: TEDUGLUTIDE
     Indication: Short-bowel syndrome
     Dosage: 0.575 MILLIGRAM, QD
     Route: 058
     Dates: start: 20200928
  3. TEDUGLUTIDE [Suspect]
     Active Substance: TEDUGLUTIDE
     Indication: Short-bowel syndrome
     Dosage: 0.575 MILLIGRAM, QD
     Route: 058
     Dates: start: 20200928
  4. TEDUGLUTIDE [Suspect]
     Active Substance: TEDUGLUTIDE
     Indication: Short-bowel syndrome
     Dosage: 0.575 MILLIGRAM, QD
     Route: 058
     Dates: start: 20200928
  5. TEDUGLUTIDE [Suspect]
     Active Substance: TEDUGLUTIDE
     Indication: Gastrointestinal disorder
     Dosage: 0.0575 MILLILITER, QD
     Route: 058
     Dates: start: 20200929
  6. TEDUGLUTIDE [Suspect]
     Active Substance: TEDUGLUTIDE
     Indication: Gastrointestinal disorder
     Dosage: 0.0575 MILLILITER, QD
     Route: 058
     Dates: start: 20200929
  7. TEDUGLUTIDE [Suspect]
     Active Substance: TEDUGLUTIDE
     Indication: Gastrointestinal disorder
     Dosage: 0.0575 MILLILITER, QD
     Route: 058
     Dates: start: 20200929
  8. TEDUGLUTIDE [Suspect]
     Active Substance: TEDUGLUTIDE
     Indication: Gastrointestinal disorder
     Dosage: 0.0575 MILLILITER, QD
     Route: 058
     Dates: start: 20200929

REACTIONS (7)
  - Sepsis [Recovered/Resolved]
  - Hospitalisation [Unknown]
  - Vascular device infection [Unknown]
  - Bacteraemia [Recovered/Resolved]
  - Dehydration [Recovered/Resolved]
  - Liver function test increased [Recovered/Resolved]
  - Product availability issue [Unknown]

NARRATIVE: CASE EVENT DATE: 20210510
